FAERS Safety Report 21461904 (Version 1)
Quarter: 2022Q4

REPORT INFORMATION
  Report Type: Report from Study
  Country: US (occurrence: US)
  Receive Date: 20221015
  Receipt Date: 20221015
  Transmission Date: 20230112
  Serious: Yes (Death, Other)
  Sender: FDA-Public Use
  Company Number: US-TAKEDA-US201924592

PATIENT
  Sex: Male
  Weight: 68.934 kg

DRUGS (4)
  1. TEDUGLUTIDE [Suspect]
     Active Substance: TEDUGLUTIDE
     Indication: Short-bowel syndrome
     Dosage: 0.344 MILLILITER, QD
     Route: 050
     Dates: start: 20190701
  2. TEDUGLUTIDE [Suspect]
     Active Substance: TEDUGLUTIDE
     Indication: Short-bowel syndrome
     Dosage: 0.344 MILLILITER, QD
     Route: 050
     Dates: start: 20190701
  3. TEDUGLUTIDE [Suspect]
     Active Substance: TEDUGLUTIDE
     Indication: Short-bowel syndrome
     Dosage: 0.344 MILLILITER, QD
     Route: 050
     Dates: start: 20190701
  4. TEDUGLUTIDE [Suspect]
     Active Substance: TEDUGLUTIDE
     Indication: Short-bowel syndrome
     Dosage: 0.344 MILLILITER, QD
     Route: 050
     Dates: start: 20190701

REACTIONS (2)
  - Death [Fatal]
  - Flatulence [Unknown]
